FAERS Safety Report 4946124-1 (Version None)
Quarter: 2006Q1

REPORT INFORMATION
  Report Type: 
  Country: None (occurrence: None)
  Receive Date: 20060316
  Receipt Date: 20050711
  Transmission Date: 20060701
  Serious: Yes (Hospitalization, Other)
  Sender: FDA-Public Use
  Company Number: US-MERCK-0507USA01466

PATIENT
  Age: 53 Year
  Sex: Male
  Weight: 61 kg

DRUGS (2)
  1. VIOXX [Suspect]
     Indication: ARTHRALGIA
     Route: 048
     Dates: start: 20010517, end: 20040801
  2. VIOXX [Suspect]
     Indication: ARTHRITIS
     Route: 048
     Dates: start: 20010517, end: 20040801

REACTIONS (4)
  - ASPIRATION [None]
  - CEREBRAL HAEMORRHAGE [None]
  - CEREBROVASCULAR ACCIDENT [None]
  - DEPRESSION [None]
